FAERS Safety Report 7778953-3 (Version None)
Quarter: 2011Q3

REPORT INFORMATION
  Report Type: 
  Country: None (occurrence: None)
  Receive Date: 20110926
  Receipt Date: 20110826
  Transmission Date: 20111222
  Serious: Yes (Death)
  Sender: FDA-Public Use
  Company Number: JP-PFIZER INC-2011131299

PATIENT
  Age: 91 Year
  Sex: Female

DRUGS (2)
  1. DOBUPUM [Concomitant]
     Indication: CARDIAC FAILURE CHRONIC
     Dosage: UNK
     Dates: start: 20110104, end: 20110109
  2. ATORVASTATIN CALCIUM [Suspect]
     Indication: HYPERCHOLESTEROLAEMIA
     Dosage: 10 MG, 1X/DAY
     Route: 048
     Dates: start: 20101007, end: 20110107

REACTIONS (1)
  - DEATH [None]
